FAERS Safety Report 4707427-9 (Version None)
Quarter: 2005Q3

REPORT INFORMATION
  Report Type: 
  Country: None (occurrence: None)
  Receive Date: 20050706
  Receipt Date: 20050629
  Transmission Date: 20060218
  Serious: Yes (Other)
  Sender: FDA-Public Use
  Company Number: 2005PK01133

PATIENT
  Age: 412 Month
  Sex: Female
  Weight: 48 kg

DRUGS (1)
  1. NEXIUM [Suspect]
     Indication: STOMACH DISCOMFORT
     Route: 048
     Dates: start: 20010101

REACTIONS (1)
  - HYPERPROLACTINAEMIA [None]
